FAERS Safety Report 7988474-0 (Version None)
Quarter: 2011Q4

REPORT INFORMATION
  Report Type: 
  Country: None (occurrence: None)
  Receive Date: 20111216
  Receipt Date: 20111207
  Transmission Date: 20120403
  Serious: Yes (Hospitalization)
  Sender: FDA-Public Use
  Company Number: US-ASTRAZENECA-2011SE74064

PATIENT
  Age: 64 Year
  Sex: Female
  Weight: 82.6 kg

DRUGS (10)
  1. SEROQUEL [Suspect]
     Route: 048
     Dates: start: 20100101
  2. TRAMADOL HCL [Concomitant]
     Indication: ARTHRITIS
  3. SEROQUEL [Suspect]
     Route: 048
     Dates: start: 20010101, end: 20100101
  4. VITAMIN B-12 [Concomitant]
     Dosage: ONCE A MONTH
  5. TEMAZEPAM [Concomitant]
  6. ATENOLOL [Concomitant]
  7. SEROQUEL [Suspect]
     Indication: BIPOLAR DISORDER
     Route: 048
     Dates: start: 19980101
  8. TRAMADOL HCL [Concomitant]
     Indication: MIGRAINE
  9. LORAZEPAM [Concomitant]
  10. TRAMADOL HCL [Concomitant]
     Indication: PAIN

REACTIONS (1)
  - APPENDICITIS [None]
